FAERS Safety Report 17018189 (Version 1)
Quarter: 2019Q4

REPORT INFORMATION
  Report Type: Spontaneous
  Country: US (occurrence: US)
  Receive Date: 20191007
  Receipt Date: 20191007
  Transmission Date: 20200122
  Serious: No
  Sender: FDA-Public Use
  Company Number: None

PATIENT
  Age: 58 Year
  Sex: Male

DRUGS (4)
  1. GEMCITABINE. [Suspect]
     Active Substance: GEMCITABINE
     Dates: start: 201910
  2. LEUCOVORIN. [Concomitant]
     Active Substance: LEUCOVORIN
  3. OXALIPLATIN. [Concomitant]
     Active Substance: OXALIPLATIN
  4. IRINOTECAN FLUOROURACIL [Concomitant]

REACTIONS (1)
  - Off label use [None]

NARRATIVE: CASE EVENT DATE: 20191007
